FAERS Safety Report 10704528 (Version 3)
Quarter: 2015Q1

REPORT INFORMATION
  Report Type: Report from Study
  Country: US (occurrence: US)
  Receive Date: 20150112
  Receipt Date: 20150310
  Transmission Date: 20150721
  Serious: Yes (Hospitalization)
  Sender: FDA-Public Use
  Company Number: US-AMGEN-USACT2015001320

PATIENT
  Age: 53 Year
  Sex: Male
  Weight: 82.1 kg

DRUGS (19)
  1. AMBIEN [Concomitant]
     Active Substance: ZOLPIDEM TARTRATE
     Dosage: 5 MG, UNK
     Route: 048
  2. ROMIPLOSTIM [Suspect]
     Active Substance: ROMIPLOSTIM
     Indication: THROMBOCYTOPENIA
     Dosage: 200 MUG, QWK
     Route: 058
     Dates: start: 20141118, end: 20150126
  3. ONDANSETRON [Concomitant]
     Active Substance: ONDANSETRON
     Dosage: 8 MG, UNK
     Route: 048
     Dates: start: 20141231
  4. NEUPOGEN [Concomitant]
     Active Substance: FILGRASTIM
     Dosage: 480 MUG, UNK
     Dates: start: 20150106
  5. COLACE [Concomitant]
     Active Substance: DOCUSATE SODIUM
     Dosage: 100 MG, UNK
     Route: 048
  6. OPANA [Concomitant]
     Active Substance: OXYMORPHONE HYDROCHLORIDE
     Dosage: 30 MG, UNK
     Route: 048
  7. DEXAMETHASONE. [Concomitant]
     Active Substance: DEXAMETHASONE
     Dosage: 6 MG, UNK
     Dates: start: 20141224, end: 20141231
  8. PERCOCET                           /00446701/ [Concomitant]
     Active Substance: ACETAMINOPHEN\OXYCODONE HYDROCHLORIDE\OXYCODONE TEREPHTHALATE
     Dosage: 325-5 MG, UNK
     Route: 048
  9. LORAZEPAM. [Concomitant]
     Active Substance: LORAZEPAM
     Dosage: 0.5 MG, UNK
     Route: 048
     Dates: start: 20141226
  10. ASMANEX [Concomitant]
     Active Substance: MOMETASONE FUROATE
     Dosage: 120 MUG, INH
  11. DILAUDID [Concomitant]
     Active Substance: HYDROMORPHONE HYDROCHLORIDE
     Dosage: 8 MG, UNK
     Route: 048
  12. RANITIDINE [Concomitant]
     Active Substance: RANITIDINE\RANITIDINE HYDROCHLORIDE
     Dosage: 300 MG, UNK
     Route: 048
  13. NEXIUM [Concomitant]
     Active Substance: ESOMEPRAZOLE MAGNESIUM
     Dosage: 40 MG, UNK
     Route: 048
  14. MIRALAX [Concomitant]
     Active Substance: POLYETHYLENE GLYCOL 3350
     Dosage: UNK
     Route: 048
  15. LACTULOSE. [Concomitant]
     Active Substance: LACTULOSE
     Dosage: 10 G/15ML, UNK
  16. NASONEX [Concomitant]
     Active Substance: MOMETASONE FUROATE
     Dosage: 50 MUG, UNK
     Route: 045
  17. MONTELUKAST [Concomitant]
     Active Substance: MONTELUKAST SODIUM
     Dosage: 10 MG, UNK
     Route: 048
  18. SENNA [Concomitant]
     Active Substance: SENNA LEAF\SENNOSIDES\SENNOSIDES A AND B
     Dosage: 8.6 MG, UNK
     Route: 048
  19. FENTANYL. [Concomitant]
     Active Substance: FENTANYL
     Dosage: 75 UNK, UNK

REACTIONS (7)
  - Colitis [Unknown]
  - Diarrhoea [Recovering/Resolving]
  - Back pain [Recovering/Resolving]
  - Neutropenia [Recovering/Resolving]
  - Vomiting [Recovering/Resolving]
  - Abdominal pain [Recovering/Resolving]
  - Nausea [Recovering/Resolving]

NARRATIVE: CASE EVENT DATE: 20150106
